FAERS Safety Report 6162164-1 (Version None)
Quarter: 2009Q2

REPORT INFORMATION
  Report Type: 
  Country: None (occurrence: None)
  Receive Date: 20090417
  Receipt Date: 20090417
  Transmission Date: 20091009
  Serious: Yes (Hospitalization)
  Sender: FDA-Public Use
  Company Number: None

PATIENT
  Sex: Female
  Weight: 12.1 kg

DRUGS (4)
  1. MERCAPTOPURINE [Suspect]
     Dosage: 825 MG
  2. METHOTREXATE [Suspect]
     Dosage: 27 MG
  3. PREDNISONE [Suspect]
     Dosage: 112.5 MG
  4. VINCRISTINE SULFATE [Concomitant]
     Dosage: .84 MG

REACTIONS (7)
  - ADRENAL DISORDER [None]
  - ANGIOCENTRIC LYMPHOMA [None]
  - EPSTEIN-BARR VIRUS INFECTION [None]
  - LIVER DISORDER [None]
  - NEUTROPHIL COUNT DECREASED [None]
  - OFF LABEL USE [None]
  - RESPIRATORY SYNCYTIAL VIRUS TEST POSITIVE [None]
